FAERS Safety Report 23937524 (Version 1)
Quarter: 2024Q2

REPORT INFORMATION
  Report Type: Spontaneous
  Country: US (occurrence: US)
  Receive Date: 20240604
  Receipt Date: 20240604
  Transmission Date: 20240716
  Serious: Yes (Other)
  Sender: FDA-Public Use
  Company Number: US-ORGANON-O2405USA000823

PATIENT
  Age: 21 Year
  Sex: Female
  Weight: 62.132 kg

DRUGS (1)
  1. NEXPLANON [Suspect]
     Active Substance: ETONOGESTREL
     Dosage: 1 IMPLANT (LEFT ARM) (68 MG)
     Route: 059
     Dates: start: 20220415, end: 20240508

REACTIONS (6)
  - Hypothyroidism [Unknown]
  - Primary syphilis [Unknown]
  - Menometrorrhagia [Not Recovered/Not Resolved]
  - Pelvic pain [Unknown]
  - Device breakage [Recovered/Resolved]
  - No adverse event [Unknown]

NARRATIVE: CASE EVENT DATE: 20230510
